FAERS Safety Report 25062399 (Version 2)
Quarter: 2025Q2

REPORT INFORMATION
  Report Type: Spontaneous
  Country: PH (occurrence: PH)
  Receive Date: 20250311
  Receipt Date: 20250410
  Transmission Date: 20250717
  Serious: Yes (Other)
  Sender: ALEXION PHARMACEUTICALS
  Company Number: PH-AstraZeneca-CH-00819744A

PATIENT
  Weight: 48.8 kg

DRUGS (3)
  1. TAGRISSO [Suspect]
     Active Substance: OSIMERTINIB
     Indication: Non-small cell lung cancer
  2. AMIVANTAMAB [Concomitant]
     Active Substance: AMIVANTAMAB
     Route: 065
  3. AFATINIB [Concomitant]
     Active Substance: AFATINIB
     Route: 065

REACTIONS (6)
  - Myocarditis [Not Recovered/Not Resolved]
  - Malignant neoplasm progression [Unknown]
  - Dizziness [Unknown]
  - Hypotension [Unknown]
  - Mucosal inflammation [Unknown]
  - Diarrhoea [Unknown]
